FAERS Safety Report 11863189 (Version 2)
Quarter: 2016Q1

REPORT INFORMATION
  Report Type: Spontaneous
  Country: US (occurrence: US)
  Receive Date: 20151223
  Receipt Date: 20160111
  Transmission Date: 20160526
  Serious: No
  Sender: FDA-Public Use
  Company Number: US-BAYER-2015-487937

PATIENT
  Sex: Male

DRUGS (1)
  1. MIRALAX [Suspect]
     Active Substance: POLYETHYLENE GLYCOL 3350
     Indication: LAXATIVE SUPPORTIVE CARE
     Dosage: 1 DF, QD
     Route: 048
     Dates: start: 20151209

REACTIONS (1)
  - Unevaluable event [None]

NARRATIVE: CASE EVENT DATE: 20151209
